FAERS Safety Report 23245918 (Version 3)
Quarter: 2023Q4

REPORT INFORMATION
  Report Type: Spontaneous
  Country: US (occurrence: None)
  Receive Date: 20231130
  Receipt Date: 20231218
  Transmission Date: 20240109
  Serious: Yes (Other)
  Sender: FDA-Public Use
  Company Number: US-ROCHE-3465734

PATIENT
  Age: 38 Year
  Sex: Female

DRUGS (1)
  1. GAVRETO [Suspect]
     Active Substance: PRALSETINIB
     Indication: Lung adenocarcinoma
     Route: 048
     Dates: start: 20210804

REACTIONS (4)
  - Fall [Unknown]
  - Back pain [Unknown]
  - Rib fracture [Unknown]
  - Metastases to bone [Unknown]
